FAERS Safety Report 11340740 (Version 1)
Quarter: 2015Q3

REPORT INFORMATION
  Report Type: Spontaneous
  Country: US (occurrence: US)
  Receive Date: 20150805
  Receipt Date: 20150805
  Transmission Date: 20151125
  Serious: No
  Sender: FDA-Public Use
  Company Number: US-PFIZER INC-2015256997

PATIENT
  Sex: Female

DRUGS (1)
  1. XANAX [Suspect]
     Active Substance: ALPRAZOLAM
     Dosage: UNK

REACTIONS (7)
  - Product quality issue [Unknown]
  - Chest pain [Unknown]
  - Suspected counterfeit product [Unknown]
  - Product shape issue [Unknown]
  - Product colour issue [Unknown]
  - Product solubility abnormal [Unknown]
  - Abdominal pain upper [Unknown]
